FAERS Safety Report 6547978-8 (Version None)
Quarter: 2010Q1

REPORT INFORMATION
  Report Type: 
  Country: None (occurrence: None)
  Receive Date: 20100124
  Receipt Date: 20091209
  Transmission Date: 20100710
  Serious: No
  Sender: FDA-Public Use
  Company Number: US-ALEXION-A200901063

PATIENT
  Sex: Male

DRUGS (1)
  1. SOLIRIS [Suspect]
     Route: 042

REACTIONS (3)
  - FATIGUE [None]
  - FEELING ABNORMAL [None]
  - NASOPHARYNGITIS [None]
